FAERS Safety Report 7553584-9 (Version None)
Quarter: 2011Q2

REPORT INFORMATION
  Report Type: 
  Country: None (occurrence: None)
  Receive Date: 20110617
  Receipt Date: 20110608
  Transmission Date: 20111010
  Serious: Yes (Hospitalization)
  Sender: FDA-Public Use
  Company Number: JP-JNJFOC-20090902263

PATIENT
  Sex: Female
  Weight: 59 kg

DRUGS (25)
  1. HALCION [Concomitant]
     Indication: INSOMNIA
     Route: 048
  2. FAMOTIDINE [Concomitant]
     Indication: PROPHYLAXIS
     Route: 048
     Dates: start: 20090903
  3. TALION [Concomitant]
     Route: 048
  4. INDOMETHACIN SODIUM [Concomitant]
     Indication: ARTHRITIS
     Route: 061
  5. AZUNOL [Concomitant]
     Indication: PROPHYLAXIS
     Route: 049
     Dates: start: 20090715
  6. PURSENNID [Concomitant]
     Indication: CONSTIPATION
     Route: 048
  7. CALCITRIOL [Concomitant]
     Indication: OSTEOPOROSIS
     Route: 048
  8. AMITRIPTYLINE HCL [Concomitant]
     Indication: DEPRESSION
     Route: 048
  9. HACHIAZULE [Concomitant]
     Indication: PROPHYLAXIS
     Route: 049
     Dates: start: 20090729, end: 20090819
  10. TIMOPTOL [Concomitant]
     Indication: GLAUCOMA
     Route: 031
  11. SERETIDE [Concomitant]
     Indication: ASTHMA
     Route: 055
  12. DOXORUBICIN HCL [Suspect]
     Route: 042
     Dates: start: 20090925, end: 20090925
  13. DOXORUBICIN HCL [Suspect]
     Indication: OVARIAN CANCER RECURRENT
     Route: 042
     Dates: start: 20091027, end: 20091027
  14. DOXORUBICIN HCL [Suspect]
     Route: 042
     Dates: start: 20090715, end: 20090715
  15. CALCIUM LACTATE [Concomitant]
     Route: 048
  16. PYRINAZIN [Concomitant]
     Indication: ARTHRITIS
     Route: 048
  17. PREDNISOLONE [Concomitant]
     Route: 048
  18. MOHRUS TAPE [Concomitant]
     Indication: ARTHRITIS
     Route: 062
  19. KARY UNI [Concomitant]
     Indication: CATARACT
     Route: 031
  20. LAMISIL [Concomitant]
     Indication: TINEA INFECTION
     Route: 061
     Dates: start: 20090729, end: 20090820
  21. ALMETA [Concomitant]
     Indication: RASH
     Route: 061
     Dates: start: 20090729, end: 20090817
  22. BONALON [Concomitant]
     Indication: OSTEOPOROSIS
     Route: 048
     Dates: end: 20091001
  23. BIOFERMIN [Concomitant]
     Indication: DIARRHOEA
     Route: 048
  24. PASTARON [Concomitant]
     Indication: PROPHYLAXIS
     Route: 061
     Dates: start: 20090715
  25. DEXALTIN [Concomitant]
     Indication: STOMATITIS
     Route: 049
     Dates: start: 20090729, end: 20090817

REACTIONS (1)
  - ASTHMA [None]
